FAERS Safety Report 10696523 (Version 1)
Quarter: 2015Q1

REPORT INFORMATION
  Report Type: Spontaneous
  Country: US (occurrence: US)
  Receive Date: 20150107
  Receipt Date: 20150107
  Transmission Date: 20150721
  Serious: No
  Sender: FDA-Public Use
  Company Number: US-009507513-1501USA000553

PATIENT
  Sex: Female

DRUGS (1)
  1. DIPROLENE AF [Suspect]
     Active Substance: BETAMETHASONE DIPROPIONATE
     Indication: SKIN INFECTION
     Route: 061

REACTIONS (1)
  - Dermatitis allergic [Unknown]
